FAERS Safety Report 12791103 (Version 2)
Quarter: 2016Q4

REPORT INFORMATION
  Report Type: Spontaneous
  Country: US (occurrence: US)
  Receive Date: 20160929
  Receipt Date: 20161005
  Transmission Date: 20170207
  Serious: No
  Sender: FDA-Public Use
  Company Number: US-PFIZER INC-2016452066

PATIENT
  Age: 55 Year
  Sex: Female
  Weight: 99.34 kg

DRUGS (3)
  1. SERTRALINE HCL [Suspect]
     Active Substance: SERTRALINE HYDROCHLORIDE
     Indication: EMOTIONAL DISORDER
     Dosage: 12.5 MG, WEEKLY(1/2 OF 25MG TABLET, ONCE A WEEK)
     Dates: start: 2009
  2. ZOLOFT [Suspect]
     Active Substance: SERTRALINE HYDROCHLORIDE
     Dosage: 12.5 MG, WEEKLY(1/2 OF A 25MG TABLET ONCE A WEEK)
  3. METOPROLOL. [Concomitant]
     Active Substance: METOPROLOL
     Indication: PALPITATIONS
     Dosage: 50 MG, 1X/DAY

REACTIONS (1)
  - Paraesthesia [Unknown]
